FAERS Safety Report 23731729 (Version 1)
Quarter: 2024Q2

REPORT INFORMATION
  Report Type: Spontaneous
  Country: US (occurrence: US)
  Receive Date: 20240411
  Receipt Date: 20240411
  Transmission Date: 20240716
  Serious: Yes (Hospitalization, Other)
  Sender: FDA-Public Use
  Company Number: US-BRISTOL-MYERS SQUIBB COMPANY-2024-053629

PATIENT
  Age: 40 Year
  Sex: Female

DRUGS (2)
  1. SPRYCEL [Suspect]
     Active Substance: DASATINIB
     Indication: Chronic myeloid leukaemia
     Dosage: DOSE : UNAVAILABLE;     FREQ : DAILY
     Route: 048
  2. SPRYCEL [Suspect]
     Active Substance: DASATINIB
     Dosage: DOSE : UNAVAILABLE;     FREQ : DAILY
     Route: 048

REACTIONS (6)
  - Fatigue [Unknown]
  - Weight increased [Unknown]
  - Dysgeusia [Unknown]
  - Headache [Unknown]
  - Nausea [Unknown]
  - Pulmonary oedema [Unknown]
